FAERS Safety Report 19350462 (Version 1)
Quarter: 2021Q2

REPORT INFORMATION
  Report Type: Spontaneous
  Country: US (occurrence: US)
  Receive Date: 20210531
  Receipt Date: 20210531
  Transmission Date: 20210717
  Serious: Yes (Hospitalization)
  Sender: FDA-Public Use
  Company Number: US-CADILA HEALTHCARE LIMITED-US-ZYDUS-066302

PATIENT

DRUGS (4)
  1. METHOTREXATE. [Interacting]
     Active Substance: METHOTREXATE
     Dosage: 20 MG/M2
     Route: 048
  2. LEUCOVORIN [FOLINIC ACID] [Concomitant]
     Active Substance: LEUCOVORIN
     Indication: DRUG CLEARANCE
     Dosage: 15 MG/M2 EVERY 3 H OR 100 MG/M2
  3. IMATINIB MESYLATE. [Suspect]
     Active Substance: IMATINIB MESYLATE
     Indication: PHILADELPHIA POSITIVE ACUTE LYMPHOCYTIC LEUKAEMIA
     Dosage: 340 MG/M2 ONCE DAILY
     Route: 065
  4. METHOTREXATE. [Interacting]
     Active Substance: METHOTREXATE
     Indication: PHILADELPHIA POSITIVE ACUTE LYMPHOCYTIC LEUKAEMIA
     Dosage: 5,000 MG/M2 INFUSED OVER 24 HOURS
     Route: 065

REACTIONS (5)
  - Acute kidney injury [Recovered/Resolved]
  - Neutropenia [Recovered/Resolved]
  - Drug interaction [Unknown]
  - Thrombocytopenia [Recovered/Resolved]
  - Clostridium difficile colitis [Recovered/Resolved]
